FAERS Safety Report 20102259 (Version 1)
Quarter: 2021Q4

REPORT INFORMATION
  Report Type: Spontaneous
  Country: US (occurrence: US)
  Receive Date: 20211123
  Receipt Date: 20211123
  Transmission Date: 20220303
  Serious: Yes (Other)
  Sender: FDA-Public Use
  Company Number: US-PFIZER INC-202101563925

PATIENT
  Sex: Male

DRUGS (1)
  1. VYNDAMAX [Suspect]
     Active Substance: TAFAMIDIS
     Dosage: 61 MG

REACTIONS (11)
  - Atrial fibrillation [Unknown]
  - Angina pectoris [Unknown]
  - Mitral valve incompetence [Unknown]
  - Cardiac amyloidosis [Unknown]
  - Myocardial ischaemia [Unknown]
  - Cardiac failure congestive [Unknown]
  - Hypertensive heart disease [Unknown]
  - Borderline glaucoma [Unknown]
  - Dyspnoea [Unknown]
  - Hyperlipidaemia [Unknown]
  - Left ventricular hypertrophy [Unknown]
